FAERS Safety Report 7049169-3 (Version None)
Quarter: 2010Q4

REPORT INFORMATION
  Report Type: 
  Country: None (occurrence: None)
  Receive Date: 20101018
  Receipt Date: 20101008
  Transmission Date: 20110411
  Serious: Yes (Hospitalization)
  Sender: FDA-Public Use
  Company Number: PHHO2010FR11465

PATIENT
  Sex: Female
  Weight: 54 kg

DRUGS (6)
  1. NEORAL [Suspect]
     Indication: RENAL TRANSPLANT
     Dosage: 100 MG, BID
     Route: 048
     Dates: start: 20100614
  2. CALCIPARINE [Suspect]
  3. CELLCEPT [Concomitant]
     Indication: RENAL TRANSPLANT
     Dosage: 1 G, BID
     Route: 048
     Dates: start: 20100611
  4. CORTANCYL [Concomitant]
     Indication: RENAL TRANSPLANT
     Dosage: 7.5 MG/DAY
     Route: 048
     Dates: start: 20100612
  5. NEXIUM [Concomitant]
     Dosage: UNK
     Route: 048
     Dates: start: 20100619
  6. BACTRIM [Concomitant]

REACTIONS (13)
  - ANAEMIA [None]
  - BLOOD CREATINE INCREASED [None]
  - CYTOMEGALOVIRUS INFECTION [None]
  - CYTOMEGALOVIRUS TEST POSITIVE [None]
  - HAEMATOMA [None]
  - HAEMORRHAGE [None]
  - HYPONATRAEMIA [None]
  - LEUKOPENIA [None]
  - OEDEMA PERIPHERAL [None]
  - PHLEBITIS [None]
  - PYREXIA [None]
  - URINARY TRACT INFECTION [None]
  - VENOUS THROMBOSIS [None]
